FAERS Safety Report 13391225 (Version 1)
Quarter: 2017Q1

REPORT INFORMATION
  Report Type: Spontaneous
  Country: US (occurrence: US)
  Receive Date: 20170331
  Receipt Date: 20170331
  Transmission Date: 20170429
  Serious: Yes (Other)
  Sender: FDA-Public Use
  Company Number: US-ELI_LILLY_AND_COMPANY-US201703011737

PATIENT
  Sex: Male

DRUGS (2)
  1. LYRICA [Suspect]
     Active Substance: PREGABALIN
     Indication: PAIN
     Dosage: UNK, UNKNOWN
     Route: 065
  2. CYMBALTA [Suspect]
     Active Substance: DULOXETINE HYDROCHLORIDE
     Indication: PAIN
     Dosage: UNK, UNKNOWN
     Route: 065

REACTIONS (10)
  - Suicidal ideation [Recovered/Resolved]
  - Fatigue [Unknown]
  - Sepsis [Unknown]
  - Hernia [Unknown]
  - Procedural pain [Unknown]
  - Infection [Unknown]
  - Tendonitis [Unknown]
  - Gastrointestinal disorder [Unknown]
  - Weight increased [Recovered/Resolved]
  - Arthritis [Unknown]
